FAERS Safety Report 13690443 (Version 1)
Quarter: 2017Q2

REPORT INFORMATION
  Report Type: Spontaneous
  Country: JP (occurrence: JP)
  Receive Date: 20170626
  Receipt Date: 20170626
  Transmission Date: 20170830
  Serious: Yes (Other)
  Sender: FDA-Public Use
  Company Number: JP-PFIZER INC-2017271599

PATIENT

DRUGS (1)
  1. LYRICA [Suspect]
     Active Substance: PREGABALIN
     Dosage: 3000 MG, (75 MG, 40 TABLETS)
     Route: 048

REACTIONS (3)
  - Somnolence [Unknown]
  - Chest discomfort [Unknown]
  - Drug use disorder [Unknown]
